FAERS Safety Report 17470894 (Version 1)
Quarter: 2020Q1

REPORT INFORMATION
  Report Type: Spontaneous
  Country: FR (occurrence: FR)
  Receive Date: 20200227
  Receipt Date: 20200227
  Transmission Date: 20200409
  Serious: Yes (Other)
  Sender: FDA-Public Use
  Company Number: FR-TEVA-2020-FR-1191911

PATIENT
  Age: 76 Year
  Sex: Male
  Weight: 88 kg

DRUGS (22)
  1. HYDROXYZINE [Suspect]
     Active Substance: HYDROXYZINE HYDROCHLORIDE
     Indication: PRODUCT USED FOR UNKNOWN INDICATION
     Route: 065
     Dates: start: 20120314
  2. VENLAFAXINE HYDROCHLORIDE. [Suspect]
     Active Substance: VENLAFAXINE HYDROCHLORIDE
     Route: 065
     Dates: start: 20120320
  3. NEOSTIGMINE SALT NOT SPECIFIED [Suspect]
     Active Substance: NEOSTIGMINE
     Indication: PRODUCT USED FOR UNKNOWN INDICATION
     Dosage: .5 DF,UNK (0.5 MILLIGRAM(S)/LITRE), 0.5 DOSAGE FORMS
     Route: 065
     Dates: start: 20120315
  4. LACTULOSE. [Concomitant]
     Active Substance: LACTULOSE
  5. BRICANYL [Concomitant]
     Active Substance: TERBUTALINE SULFATE
  6. LOVENOX [Concomitant]
     Active Substance: ENOXAPARIN SODIUM
  7. PROCORALAN [Concomitant]
     Active Substance: IVABRADINE
     Dosage: UNK
  8. TRIMEBUTINE MALEATE [Concomitant]
     Active Substance: TRIMEBUTINE MALEATE
  9. PLAVIX [Concomitant]
     Active Substance: CLOPIDOGREL BISULFATE
     Dosage: UNK UNK,QD
  10. TAHOR [Concomitant]
     Active Substance: ATORVASTATIN CALCIUM
  11. ATROVENT [Concomitant]
     Active Substance: IPRATROPIUM BROMIDE
  12. IMOVANE [Suspect]
     Active Substance: ZOPICLONE
     Indication: PRODUCT USED FOR UNKNOWN INDICATION
     Route: 065
     Dates: start: 20120313
  13. NOVORAPID [Concomitant]
     Active Substance: INSULIN ASPART
  14. CORDARONE [Concomitant]
     Active Substance: AMIODARONE HYDROCHLORIDE
  15. LASILIX [FUROSEMIDE] [Concomitant]
     Active Substance: FUROSEMIDE
     Dosage: 40 MG,BID
  16. MOTILIUM [Concomitant]
     Active Substance: DOMPERIDONE
  17. LANTUS [Concomitant]
     Active Substance: INSULIN GLARGINE
     Dosage: 20 IU,UNK
  18. KARDEGIC [Concomitant]
     Active Substance: ASPIRIN DL-LYSINE
  19. VENLAFAXINE HYDROCHLORIDE. [Suspect]
     Active Substance: VENLAFAXINE HYDROCHLORIDE
     Indication: PRODUCT USED FOR UNKNOWN INDICATION
     Dosage: UNK UNK,UNK
     Route: 065
     Dates: start: 20120316, end: 20120317
  20. TRIATEC [RAMIPRIL] [Concomitant]
     Active Substance: RAMIPRIL
  21. BECLOMETASONE [Concomitant]
     Active Substance: BECLOMETHASONE DIPROPIONATE
  22. INEXIUM [ESOMEPRAZOLE MAGNESIUM] [Concomitant]
     Active Substance: ESOMEPRAZOLE MAGNESIUM

REACTIONS (3)
  - Urticaria [Recovered/Resolved]
  - Rash erythematous [Recovered/Resolved]
  - Purpura [Recovered/Resolved]

NARRATIVE: CASE EVENT DATE: 20120317
